FAERS Safety Report 22163859 (Version 3)
Quarter: 2023Q2

REPORT INFORMATION
  Report Type: Report from Study
  Country: JP (occurrence: JP)
  Receive Date: 20230401
  Receipt Date: 20230529
  Transmission Date: 20230722
  Serious: Yes (Life-Threatening)
  Sender: FDA-Public Use
  Company Number: JP-SERVIER-S23003070

PATIENT
  Age: 71 Year
  Sex: Female
  Weight: 64 kg

DRUGS (11)
  1. ONIVYDE [Suspect]
     Active Substance: IRINOTECAN HYDROCHLORIDE
     Indication: Pancreatic carcinoma
     Dosage: 50 MG/M2
     Route: 065
     Dates: start: 20220114, end: 20220114
  2. ONIVYDE [Suspect]
     Active Substance: IRINOTECAN HYDROCHLORIDE
     Dosage: 50 MG/M2
     Route: 065
     Dates: start: 20220127, end: 20220127
  3. ONIVYDE [Suspect]
     Active Substance: IRINOTECAN HYDROCHLORIDE
     Dosage: 50 MG/M2
     Route: 065
     Dates: start: 20220210, end: 20220210
  4. LEVOLEUCOVORIN CALCIUM [Concomitant]
     Active Substance: LEVOLEUCOVORIN CALCIUM
     Indication: Pancreatic carcinoma
     Dosage: 200 MG/M2
     Route: 065
     Dates: start: 20220114, end: 20220114
  5. LEVOLEUCOVORIN CALCIUM [Concomitant]
     Active Substance: LEVOLEUCOVORIN CALCIUM
     Dosage: 200 MG/M2
     Route: 065
     Dates: start: 20220127, end: 20220127
  6. LEVOLEUCOVORIN CALCIUM [Concomitant]
     Active Substance: LEVOLEUCOVORIN CALCIUM
     Dosage: 200 MG/M2
     Route: 065
     Dates: start: 20220210, end: 20220210
  7. FLUOROURACIL [Concomitant]
     Active Substance: FLUOROURACIL
     Indication: Pancreatic carcinoma
     Dosage: 1800 MG/M2
     Route: 065
     Dates: start: 20220114, end: 20220116
  8. FLUOROURACIL [Concomitant]
     Active Substance: FLUOROURACIL
     Dosage: 1800 MG/M2
     Route: 065
     Dates: start: 20220127, end: 20220129
  9. FLUOROURACIL [Concomitant]
     Active Substance: FLUOROURACIL
     Dosage: 1800 MG/M2
     Route: 065
     Dates: start: 20220210, end: 20220210
  10. PALONOSETRON HYDROCHLORIDE [Concomitant]
     Active Substance: PALONOSETRON HYDROCHLORIDE
     Indication: Chemotherapy side effect prophylaxis
     Dosage: UNKNOWN
     Route: 065
  11. DEXAMETHASONE [Concomitant]
     Active Substance: DEXAMETHASONE
     Indication: Chemotherapy side effect prophylaxis
     Dosage: UNKNOWN

REACTIONS (2)
  - Acute respiratory failure [Recovered/Resolved]
  - Off label use [Unknown]

NARRATIVE: CASE EVENT DATE: 20220114
